FAERS Safety Report 4837451-7 (Version None)
Quarter: 2005Q4

REPORT INFORMATION
  Report Type: 
  Country: None (occurrence: None)
  Receive Date: 20051128
  Receipt Date: 20051116
  Transmission Date: 20060501
  Serious: Yes (Death)
  Sender: FDA-Public Use
  Company Number: GB-JNJFOC-20051104209

PATIENT
  Age: 25 Year
  Sex: Male

DRUGS (3)
  1. RISPERDAL CONSTA [Suspect]
     Indication: DRUG USE FOR UNKNOWN INDICATION
     Route: 065
  2. FLUOXETINE [Concomitant]
     Route: 065
  3. AMISULPIRIDE [Concomitant]
     Route: 065

REACTIONS (1)
  - DEATH [None]
